FAERS Safety Report 11682000 (Version 1)
Quarter: 2015Q4

REPORT INFORMATION
  Report Type: Spontaneous
  Country: None (occurrence: None)
  Receive Date: 20151028
  Receipt Date: 20151028
  Transmission Date: 20160304
  Serious: Yes (Hospitalization)
  Sender: FDA-Public Use
  Company Number: None

PATIENT
  Age: 55 Year
  Sex: Male
  Weight: 68 kg

DRUGS (10)
  1. LEXAPRO 20MG - GENERIC [Suspect]
     Active Substance: ESCITALOPRAM OXALATE
     Indication: DEPRESSION
  2. LEXAPRO 20MG - GENERIC [Suspect]
     Active Substance: ESCITALOPRAM OXALATE
     Indication: PSYCHOTIC DISORDER
  3. REMERON [Suspect]
     Active Substance: MIRTAZAPINE
  4. OLANZAPINE. [Concomitant]
     Active Substance: OLANZAPINE
  5. FISH OIL [Concomitant]
     Active Substance: FISH OIL
  6. BENZOS (XANAX) [Concomitant]
  7. BRITELLIX [Concomitant]
  8. MAGNESIUM [Concomitant]
     Active Substance: MAGNESIUM
  9. VITAMIN C [Concomitant]
     Active Substance: ASCORBIC ACID
  10. VALIUM [Concomitant]
     Active Substance: DIAZEPAM

REACTIONS (10)
  - Agitation [None]
  - Psychiatric symptom [None]
  - Social phobia [None]
  - Restlessness [None]
  - Personality change [None]
  - Decreased activity [None]
  - Loss of employment [None]
  - Anxiety [None]
  - Histrionic personality disorder [None]
  - Amnesia [None]
